FAERS Safety Report 7295376-4 (Version None)
Quarter: 2011Q1

REPORT INFORMATION
  Report Type: 
  Country: None (occurrence: None)
  Receive Date: 20110216
  Receipt Date: 20110208
  Transmission Date: 20110831
  Serious: Yes (Hospitalization)
  Sender: FDA-Public Use
  Company Number: US-B.I. PHARMACEUTICALS,INC./RIDGEFIELD-2011-BP-02366BP

PATIENT
  Sex: Male

DRUGS (15)
  1. TAMSULOSIN HCL [Concomitant]
  2. GLUCOSAMINE W CHONDROTIN [Concomitant]
  3. SPIRIVA [Suspect]
     Indication: CHRONIC OBSTRUCTIVE PULMONARY DISEASE
     Route: 055
     Dates: start: 20070101, end: 20070101
  4. SPIRIVA [Suspect]
     Indication: EMPHYSEMA
     Dosage: 18 MCG
     Route: 055
     Dates: start: 20070101
  5. SPIRONOLACT [Suspect]
     Indication: HYPERTENSION
     Route: 048
     Dates: start: 20110121
  6. FINASTERIDE [Concomitant]
     Indication: PROSTATIC DISORDER
  7. ATENOLOL [Concomitant]
     Indication: CARDIAC DISORDER
  8. SPIRONOLACT [Suspect]
     Indication: DIURETIC THERAPY
  9. ATENOLOL [Concomitant]
     Indication: HYPERTENSION
  10. MULTI-VITAMIN [Concomitant]
  11. PROPAFENONE HCL [Suspect]
     Indication: ARRHYTHMIA
     Dosage: 450 MG
     Route: 048
     Dates: start: 20110121
  12. ETODOLAC [Concomitant]
     Indication: PAIN
  13. PRADAXA [Suspect]
     Dosage: 300 MG
     Dates: start: 20110203
  14. ADVAIR [Concomitant]
     Indication: CHRONIC OBSTRUCTIVE PULMONARY DISEASE
     Route: 055
  15. PANTOPRAZOLE [Concomitant]
     Indication: GASTROOESOPHAGEAL REFLUX DISEASE

REACTIONS (10)
  - GOUT [None]
  - DYSURIA [None]
  - PNEUMONIA [None]
  - DYSPNOEA [None]
  - BLOOD PRESSURE DECREASED [None]
  - MICTURITION DISORDER [None]
  - DIZZINESS [None]
  - BALANCE DISORDER [None]
  - ABDOMINAL PAIN UPPER [None]
  - HEART RATE INCREASED [None]
